FAERS Safety Report 11204046 (Version 1)
Quarter: 2015Q2

REPORT INFORMATION
  Report Type: Spontaneous
  Country: US (occurrence: US)
  Receive Date: 20150619
  Receipt Date: 20150619
  Transmission Date: 20150821
  Serious: Yes (Death, Other)
  Sender: FDA-Public Use
  Company Number: PHHY2015US072427

PATIENT
  Age: 55 Year
  Sex: Male

DRUGS (5)
  1. CYCLOPHOSPHAMIDE. [Concomitant]
     Active Substance: CYCLOPHOSPHAMIDE
     Indication: PRODUCT USED FOR UNKNOWN INDICATION
     Route: 065
  2. SUNITINIB [Suspect]
     Active Substance: SUNITINIB
     Indication: METASTATIC RENAL CELL CARCINOMA
     Route: 065
  3. NIPENT [Concomitant]
     Active Substance: PENTOSTATIN
     Indication: RENAL FAILURE
     Dosage: 4 MG/M2, UNK
     Route: 042
  4. EVEROLIMUS [Suspect]
     Active Substance: EVEROLIMUS
     Indication: METASTATIC RENAL CELL CARCINOMA
     Route: 065
  5. SIROLIMUS. [Concomitant]
     Active Substance: SIROLIMUS
     Indication: STEM CELL TRANSPLANT
     Route: 065

REACTIONS (5)
  - Metastases to lung [Unknown]
  - Metastases to lymph nodes [Unknown]
  - Malignant neoplasm progression [Fatal]
  - Metastases to bone [Unknown]
  - Metastases to soft tissue [Unknown]
